FAERS Safety Report 9136949 (Version 1)
Quarter: 2013Q1

REPORT INFORMATION
  Report Type: Spontaneous
  Country: US (occurrence: US)
  Receive Date: 20130304
  Receipt Date: 20130304
  Transmission Date: 20140127
  Serious: No
  Sender: FDA-Public Use
  Company Number: US-ABBOTT-12P-163-0912629-00

PATIENT
  Age: 67 None
  Sex: Male
  Weight: 80.81 kg

DRUGS (9)
  1. ANDROGEL 1% [Suspect]
     Indication: BLOOD TESTOSTERONE DECREASED
     Dates: start: 2007, end: 201202
  2. ANDROGEL 1% [Suspect]
     Dosage: ONCE A DAY FIVE DAYS WEEK
     Dates: start: 201202
  3. UNKNOWN BLOOD PRESSURE MEDICATION [Concomitant]
     Indication: HYPERTENSION
  4. VITAMIN D [Concomitant]
     Indication: PRODUCT USED FOR UNKNOWN INDICATION
  5. ADVICOR [Concomitant]
     Indication: BLOOD CHOLESTEROL INCREASED
  6. AVOPRO [Concomitant]
     Indication: HYPERTENSION
  7. AMLODIPINE [Concomitant]
     Indication: HYPERTENSION
  8. LOVAZA [Concomitant]
     Indication: BLOOD TRIGLYCERIDES INCREASED
  9. LEVOTHRYOXINE [Concomitant]
     Indication: HYPOTHYROIDISM

REACTIONS (3)
  - Alopecia [Not Recovered/Not Resolved]
  - Hair growth abnormal [Not Recovered/Not Resolved]
  - Blood testosterone increased [Not Recovered/Not Resolved]
